FAERS Safety Report 21486211 (Version 1)
Quarter: 2022Q4

REPORT INFORMATION
  Report Type: Report from Study
  Country: AR (occurrence: AR)
  Receive Date: 20221020
  Receipt Date: 20221020
  Transmission Date: 20230112
  Serious: Yes (Death, Life-Threatening, Other)
  Sender: FDA-Public Use
  Company Number: AR-TAKEDA-AR201930971

PATIENT
  Age: 12 Year
  Sex: Male
  Weight: 37 kg

DRUGS (6)
  1. IDURSULFASE [Suspect]
     Active Substance: IDURSULFASE
     Indication: Mucopolysaccharidosis II
     Dosage: UNK, 1X/WEEK
     Route: 050
  2. IDURSULFASE [Suspect]
     Active Substance: IDURSULFASE
     Dosage: UNK, 1X/WEEK
     Route: 042
  3. IDURSULFASE [Suspect]
     Active Substance: IDURSULFASE
     Dosage: 0.5 MILLIGRAM/KILOGRAM
     Route: 050
     Dates: start: 20120502
  4. IDURSULFASE [Suspect]
     Active Substance: IDURSULFASE
     Dosage: 0.5 MILLIGRAM/KILOGRAM
     Route: 042
     Dates: start: 20130409
  5. IDURSULFASE [Suspect]
     Active Substance: IDURSULFASE
     Dosage: UNK
     Route: 042
  6. IDURSULFASE [Suspect]
     Active Substance: IDURSULFASE
     Dosage: UNK
     Route: 042

REACTIONS (11)
  - General physical health deterioration [Fatal]
  - Hernia perforation [Fatal]
  - Mucopolysaccharidosis II [Fatal]
  - Dyspnoea [Unknown]
  - Seizure [Recovering/Resolving]
  - Respiratory distress [Unknown]
  - Pneumonia [Unknown]
  - Dysphagia [Unknown]
  - Productive cough [Recovering/Resolving]
  - Pyrexia [Recovered/Resolved]
  - Product storage error [Unknown]

NARRATIVE: CASE EVENT DATE: 20210106
